FAERS Safety Report 5680265-9 (Version None)
Quarter: 2008Q1

REPORT INFORMATION
  Report Type: 
  Country: None (occurrence: None)
  Receive Date: 20080326
  Receipt Date: 20080316
  Transmission Date: 20080703
  Serious: Yes (Hospitalization)
  Sender: FDA-Public Use
  Company Number: GB-ROCHE-553442

PATIENT
  Age: 26 Year
  Sex: Female
  Weight: 177.8 kg

DRUGS (2)
  1. ORLISTAT [Suspect]
     Indication: OBESITY
     Route: 048
     Dates: start: 20071108, end: 20080224
  2. ANTIBIOTIC NOS [Concomitant]
     Dosage: ON LONG TERM

REACTIONS (1)
  - CARDIAC FAILURE [None]
